FAERS Safety Report 10093987 (Version 2)
Quarter: 2014Q2

REPORT INFORMATION
  Report Type: Spontaneous
  Country: CN (occurrence: CN)
  Receive Date: 20140421
  Receipt Date: 20140516
  Transmission Date: 20141212
  Serious: Yes (Hospitalization, Other)
  Sender: FDA-Public Use
  Company Number: CN-009507513-1404CHN010475

PATIENT
  Age: 32 Year
  Sex: Male
  Weight: 51 kg

DRUGS (2)
  1. PEG-INTRON [Suspect]
     Indication: CHRONIC HEPATITIS B
     Dosage: 50 MICROGRAM, QW
     Route: 058
     Dates: start: 20121219
  2. PEGINTERFERON ALFA-2A [Concomitant]
     Indication: CHRONIC HEPATITIS C
     Dosage: 180 MICROGRAM, QW
     Dates: start: 20121030, end: 201212

REACTIONS (1)
  - Bone marrow failure [Not Recovered/Not Resolved]
